FAERS Safety Report 16586440 (Version 3)
Quarter: 2019Q3

REPORT INFORMATION
  Report Type: Spontaneous
  Country: US (occurrence: US)
  Receive Date: 20190717
  Receipt Date: 20190920
  Transmission Date: 20191004
  Serious: Yes (Hospitalization)
  Sender: FDA-Public Use
  Company Number: US-ASTRAZENECA-2019SE91916

PATIENT
  Age: 18777 Day
  Sex: Male
  Weight: 80.7 kg

DRUGS (23)
  1. LISINOPRIL. [Suspect]
     Active Substance: LISINOPRIL
     Route: 048
  2. HYDROCORTISONE. [Concomitant]
     Active Substance: HYDROCORTISONE
     Dosage: APPLY TOPICALLY 2 TIMES A DAY
  3. NEURONTIN [Concomitant]
     Active Substance: GABAPENTIN
     Route: 048
  4. LIPITOR [Concomitant]
     Active Substance: ATORVASTATIN CALCIUM
  5. NEPHRO VITE RX [Concomitant]
     Active Substance: ASCORBIC ACID\BIOTIN\CALCIUM PANTOTHENATE\CYANOCOBALAMIN\FOLIC ACID\NIACINAMIDE\PYRIDOXINE HYDROCHLORIDE\RIBOFLAVIN\THIAMINE MONONITRATE
  6. COREG [Concomitant]
     Active Substance: CARVEDILOL
     Route: 048
  7. EMLA [Concomitant]
     Active Substance: LIDOCAINE\PRILOCAINE
     Dosage: AS REQUIRED
  8. NORVASC [Concomitant]
     Active Substance: AMLODIPINE BESYLATE
     Route: 048
  9. MIRCERA [Concomitant]
     Active Substance: METHOXY POLYETHYLENE GLYCOL-EPOETIN BETA
  10. LISINOPRIL. [Suspect]
     Active Substance: LISINOPRIL
     Route: 048
  11. CLONIDINE. [Concomitant]
     Active Substance: CLONIDINE
     Dosage: 0.3 MG/24 HR, TD, 1 PATCH ONCE A WEEK
  12. PREDNISONE. [Concomitant]
     Active Substance: PREDNISONE
  13. PHOSLO [Concomitant]
     Active Substance: CALCIUM ACETATE
     Route: 048
  14. ENULOSE [Concomitant]
     Active Substance: LACTULOSE
     Dosage: 20 GRAM/30 ML
  15. BENADRYL [Concomitant]
     Active Substance: DIPHENHYDRAMINE HYDROCHLORIDE
     Dosage: TAKE 1 CAPSULE BY MOUTH EVERY 6 HOURS AS NEEDED FOR ITCHING
  16. LEVEMIR [Concomitant]
     Active Substance: INSULIN DETEMIR
     Dosage: INJECT 5 UNITS UNDER THE SKIN NIGHTLY AT BEDTIME
  17. LIDOCAINE PLUS [Concomitant]
     Dosage: 4 PERCENT, TOP, 1 A SMALL AMOUNT AS DIRECTED
  18. LOKELMA [Suspect]
     Active Substance: SODIUM ZIRCONIUM CYCLOSILICATE
     Indication: BLOOD POTASSIUM INCREASED
     Dosage: 5 GRAM, TAKE 1 PACKET DISSOLVE IN WATER ONCE A WEEK ON MONDAY
     Route: 048
     Dates: start: 20190531, end: 201906
  19. ASPIRIN. [Concomitant]
     Active Substance: ASPIRIN
     Route: 048
  20. APIDRA [Concomitant]
     Active Substance: INSULIN GLULISINE
     Dosage: INJECT 5 UNITS UNDER THE SKIN 3 TIMES A DAY BEFORE MEALS
  21. PEPCID [Concomitant]
     Active Substance: FAMOTIDINE
     Route: 042
  22. APRESOLINE HYDROCHLORIDE [Concomitant]
     Active Substance: HYDRALAZINE HYDROCHLORIDE
     Route: 048
  23. VENOFER [Concomitant]
     Active Substance: IRON SUCROSE

REACTIONS (3)
  - Rash [Unknown]
  - Arthralgia [Unknown]
  - Exfoliative rash [Recovered/Resolved]

NARRATIVE: CASE EVENT DATE: 20190602
